FAERS Safety Report 8234862-7 (Version None)
Quarter: 2012Q1

REPORT INFORMATION
  Report Type: 
  Country: None (occurrence: None)
  Receive Date: 20120322
  Receipt Date: 20120308
  Transmission Date: 20120608
  Serious: Yes (Life-Threatening)
  Sender: FDA-Public Use
  Company Number: JP-2012-11918

PATIENT
  Age: 79 Year
  Sex: Male

DRUGS (8)
  1. PLETAL [Suspect]
     Indication: BRADYCARDIA
     Dosage: 100 MG MILLIGRAM(S), BID, ORAL
     Route: 048
     Dates: start: 20080820, end: 20120222
  2. LANIRAPID (METILDIGOXIN) [Concomitant]
  3. AMOBAN (ZOPICLONE) [Concomitant]
  4. FERROMIA (SODIUM FERROUS CITRATE) [Concomitant]
  5. KREMEZIN (CHARCOAL, ACTIVATED) [Concomitant]
  6. FAMOTIDINE [Concomitant]
  7. FUROSEMIDE [Concomitant]
  8. WARFARIN SODIUM [Concomitant]

REACTIONS (1)
  - INTERSTITIAL LUNG DISEASE [None]
